FAERS Safety Report 9983605 (Version 1)
Quarter: 2014Q1

REPORT INFORMATION
  Report Type: Spontaneous
  Country: US (occurrence: US)
  Receive Date: 20140307
  Receipt Date: 20140307
  Transmission Date: 20141002
  Serious: No
  Sender: FDA-Public Use
  Company Number: US-BAYER-2014-029060

PATIENT
  Age: 57 Year
  Sex: Female

DRUGS (5)
  1. AVELOX [Suspect]
     Indication: RESPIRATORY TRACT INFECTION
     Dosage: UNK
     Route: 048
     Dates: start: 20140219
  2. MAGNESIUM [Suspect]
     Dosage: 1500 MG, UNK
  3. CELEBREX [Concomitant]
  4. NEXIUM [Concomitant]
  5. ZITHROMAX [Concomitant]

REACTIONS (1)
  - Muscle spasms [Recovered/Resolved]
